FAERS Safety Report 22995125 (Version 6)
Quarter: 2025Q1

REPORT INFORMATION
  Report Type: Spontaneous
  Country: ZA (occurrence: ZA)
  Receive Date: 20230927
  Receipt Date: 20250219
  Transmission Date: 20250409
  Serious: Yes (Hospitalization, Other)
  Sender: SANOFI AVENTIS
  Company Number: ZA-SA-2023SA145677

PATIENT
  Age: 33 Year
  Sex: Female

DRUGS (4)
  1. MYOZYME [Suspect]
     Active Substance: ALGLUCOSIDASE ALFA
     Indication: Glycogen storage disease type II
     Dosage: 20 MG/KG, QOW
     Route: 042
     Dates: start: 20230201, end: 2023
  2. MYOZYME [Suspect]
     Active Substance: ALGLUCOSIDASE ALFA
     Dosage: 20 MG/KG, QOW
     Route: 042
  3. RITUXIMAB [Concomitant]
     Active Substance: RITUXIMAB
  4. HYDROCORTISONE [Concomitant]
     Active Substance: HYDROCORTISONE

REACTIONS (7)
  - Illness [Unknown]
  - Malaise [Unknown]
  - Post procedural sepsis [Unknown]
  - Autoimmune disorder [Unknown]
  - Antinuclear antibody positive [Unknown]
  - Arthritis [Unknown]
  - Complement factor C3 decreased [Unknown]

NARRATIVE: CASE EVENT DATE: 20230101
